FAERS Safety Report 8640309 (Version 2)
Quarter: 2013Q2

REPORT INFORMATION
  Report Type: Report from Study
  Country: US (occurrence: US)
  Receive Date: 20120628
  Receipt Date: 20130627
  Transmission Date: 20140414
  Serious: Yes (Other)
  Sender: FDA-Public Use
  Company Number: US-MYLANLABS-2012S1005518

PATIENT
  Age: 33 Year
  Sex: Male

DRUGS (8)
  1. CLOZAPINE TABLETS [Suspect]
     Indication: SCHIZOPHRENIA
     Dates: start: 20040902, end: 20120305
  2. CLOZAPINE TABLETS [Suspect]
     Indication: SCHIZOPHRENIA
     Dates: start: 20120306, end: 2012
  3. CLOZAPINE TABLETS [Suspect]
     Indication: SCHIZOPHRENIA
     Dates: start: 20120306, end: 2012
  4. CLOZAPINE TABLETS [Suspect]
     Indication: SCHIZOPHRENIA
     Route: 048
     Dates: start: 2012, end: 20120621
  5. FLUOXETINE [Concomitant]
  6. SAPHRIS [Concomitant]
     Dates: start: 20120604
  7. CEPHALEXIN [Concomitant]
     Dates: start: 20120521
  8. HYDROCODONE/APAP [Concomitant]
     Dosage: 5MG/325MG
     Dates: start: 20120521

REACTIONS (2)
  - Granulocytopenia [Not Recovered/Not Resolved]
  - Leukopenia [Not Recovered/Not Resolved]
